FAERS Safety Report 11381651 (Version 1)
Quarter: 2015Q3

REPORT INFORMATION
  Report Type: Spontaneous
  Country: SE (occurrence: SE)
  Receive Date: 20150814
  Receipt Date: 20150814
  Transmission Date: 20151125
  Serious: Yes (Hospitalization)
  Sender: FDA-Public Use
  Company Number: SE-JNJFOC-20150808881

PATIENT
  Age: 68 Year
  Sex: Female

DRUGS (2)
  1. REMICADE [Suspect]
     Active Substance: INFLIXIMAB
     Indication: ARTERITIS
     Route: 042
     Dates: start: 20150120
  2. REMICADE [Suspect]
     Active Substance: INFLIXIMAB
     Indication: ARTERITIS
     Route: 042
     Dates: start: 201502, end: 20150221

REACTIONS (2)
  - Aortitis [Recovering/Resolving]
  - Product use issue [Unknown]

NARRATIVE: CASE EVENT DATE: 20150120
